FAERS Safety Report 8089507-6 (Version None)
Quarter: 2012Q1

REPORT INFORMATION
  Report Type: 
  Country: None (occurrence: None)
  Receive Date: 20120128
  Receipt Date: 20110713
  Transmission Date: 20120608
  Serious: No
  Sender: FDA-Public Use
  Company Number: US-ABBOTT-11P-163-0838455-00

PATIENT
  Sex: Female
  Weight: 49.94 kg

DRUGS (3)
  1. UNKNOWN BC PILLS [Concomitant]
     Indication: PRODUCT USED FOR UNKNOWN INDICATION
  2. HUMIRA [Suspect]
     Indication: CROHN'S DISEASE
     Dates: start: 20090901
  3. VYVANSE [Concomitant]
     Indication: ATTENTION DEFICIT/HYPERACTIVITY DISORDER

REACTIONS (3)
  - INJECTION SITE PAIN [None]
  - GASTROINTESTINAL DISORDER [None]
  - INJECTION SITE URTICARIA [None]
